FAERS Safety Report 13597026 (Version 1)
Quarter: 2017Q2

REPORT INFORMATION
  Report Type: Spontaneous
  Country: US (occurrence: US)
  Receive Date: 20170531
  Receipt Date: 20170531
  Transmission Date: 20170830
  Serious: No
  Sender: FDA-Public Use
  Company Number: US-BAYER-2017-092285

PATIENT
  Sex: Female
  Weight: 66 kg

DRUGS (1)
  1. CLARITIN [Suspect]
     Active Substance: LORATADINE
     Indication: EAR CONGESTION
     Route: 048

REACTIONS (4)
  - Dyspnoea [Recovering/Resolving]
  - Product use in unapproved indication [Unknown]
  - Therapeutic response unexpected [Unknown]
  - Cough [Recovering/Resolving]
